FAERS Safety Report 4861646-X (Version None)
Quarter: 2005Q4

REPORT INFORMATION
  Report Type: 
  Country: None (occurrence: None)
  Receive Date: 20051130
  Receipt Date: 20050510
  Transmission Date: 20060501
  Serious: Yes (Other)
  Sender: FDA-Public Use
  Company Number: 200510286BWH

PATIENT
  Age: 37 Year
  Sex: Female

DRUGS (11)
  1. CIPRO [Suspect]
     Indication: PERICHONDRITIS
     Dosage: 500 MG, BID, ORAL
     Route: 048
     Dates: start: 20040723, end: 20040728
  2. CIPRO [Suspect]
     Indication: PERICHONDRITIS
     Dosage: 500 MG, BID, ORAL
     Route: 048
     Dates: start: 20050105, end: 20050112
  3. CLOZAPINE [Suspect]
     Indication: SCHIZOPHRENIA
     Dosage: 500 MG, TOTAL DAILY, ORAL
     Route: 048
     Dates: start: 20040424, end: 20050113
  4. CLINDAMYCIN [Suspect]
     Indication: PERICHONDRITIS
     Dosage: 450 MG, TID, ORAL
     Route: 048
     Dates: start: 20050105, end: 20050111
  5. CIPROFLOXACIN OTIC HCL [Concomitant]
  6. EFFEXOR [Concomitant]
  7. DDAVP [Concomitant]
  8. ARTANE [Concomitant]
  9. MULTI-VITAMIN [Concomitant]
  10. COLACE [Concomitant]
  11. CIPROFLOXACIN OPHTHALMOLOGIC SOLUTION [Concomitant]

REACTIONS (1)
  - NEUTROPENIA [None]
